FAERS Safety Report 11130572 (Version 2)
Quarter: 2015Q2

REPORT INFORMATION
  Report Type: Spontaneous
  Country: US (occurrence: None)
  Receive Date: 20150520
  Receipt Date: 20150601
  Transmission Date: 20150821
  Serious: Yes (Death, Hospitalization)
  Sender: FDA-Public Use
  Company Number: INS201505-000197

PATIENT
  Age: 88 Year
  Sex: Female
  Weight: 40.36 kg

DRUGS (15)
  1. CYPROHEPTADINE. [Concomitant]
     Active Substance: CYPROHEPTADINE
  2. HYDROCODONE BITARTRATE AND ACETAMINOPHEN [Concomitant]
     Active Substance: ACETAMINOPHEN\HYDROCODONE BITARTRATE
  3. NEULASTA [Concomitant]
     Active Substance: PEGFILGRASTIM
  4. ADVAIR DISKUS (FLUTICASONE PROPIONATE) [Concomitant]
  5. GEMZAR [Concomitant]
     Active Substance: GEMCITABINE HYDROCHLORIDE
  6. SPIRIVA WITH HANDIHALER (TIOTROPIUM BROMIDE) [Concomitant]
  7. DIGOXIN. [Concomitant]
     Active Substance: DIGOXIN
  8. LISINOPRIL. [Concomitant]
     Active Substance: LISINOPRIL
  9. LOMOTIL (DIPHENOXYLATE, ATROPINE) [Concomitant]
  10. SUBSYS [Suspect]
     Active Substance: FENTANYL
     Indication: BREAKTHROUGH PAIN
     Dosage: (200MCG,6 TIMES A DAY AS NEEDED)
     Dates: start: 20140926, end: 20150102
  11. DRONABINOL. [Concomitant]
     Active Substance: DRONABINOL
  12. MARINOL [Concomitant]
     Active Substance: DRONABINOL
  13. ABRAXANE [Concomitant]
     Active Substance: PACLITAXEL
  14. AMOX-TR-K CLV (AMOXICILLIN, CLAVULANATE POTASSIUM) [Concomitant]
  15. MEGACE [Concomitant]
     Active Substance: MEGESTROL ACETATE

REACTIONS (11)
  - Malnutrition [None]
  - Red cell distribution width increased [None]
  - Blood bilirubin increased [None]
  - Metastases to liver [None]
  - Glomerular filtration rate decreased [None]
  - Blood glucose increased [None]
  - Blood urea increased [None]
  - Blood alkaline phosphatase increased [None]
  - Death [None]
  - Aspartate aminotransferase increased [None]
  - Lung neoplasm malignant [None]
